FAERS Safety Report 11027390 (Version 1)
Quarter: 2015Q2

REPORT INFORMATION
  Report Type: Spontaneous
  Country: US (occurrence: US)
  Receive Date: 20150414
  Receipt Date: 20150414
  Transmission Date: 20150821
  Serious: Yes (Other)
  Sender: FDA-Public Use
  Company Number: US-PURDUE PHARMA-USA-2015-0122561

PATIENT
  Sex: Male

DRUGS (4)
  1. SENOKOT [Suspect]
     Active Substance: SENNOSIDES
     Indication: CONSTIPATION
     Dosage: 2 TABLET, UNK
     Route: 048
     Dates: start: 20150408
  2. OXYCONTIN [Suspect]
     Active Substance: OXYCODONE HYDROCHLORIDE
     Indication: PRODUCT USED FOR UNKNOWN INDICATION
     Route: 048
  3. OXYCODONE HCL CR TABLETS (SIMILAR TO NDA 22-272) [Suspect]
     Active Substance: OXYCODONE HYDROCHLORIDE
     Indication: PRODUCT USED FOR UNKNOWN INDICATION
     Route: 048
  4. SENOKOT [Suspect]
     Active Substance: SENNOSIDES
     Dosage: 1 TABLET, UNK
     Route: 048

REACTIONS (5)
  - Abdominal distension [Recovered/Resolved]
  - Intestinal obstruction [Unknown]
  - Hypophagia [Unknown]
  - Oesophageal disorder [Recovered/Resolved]
  - Constipation [Recovered/Resolved]

NARRATIVE: CASE EVENT DATE: 20150408
